FAERS Safety Report 9249725 (Version 2)
Quarter: 2014Q1

REPORT INFORMATION
  Report Type: Spontaneous
  Country: US (occurrence: US)
  Receive Date: 20130423
  Receipt Date: 20140102
  Transmission Date: 20141002
  Serious: No
  Sender: FDA-Public Use
  Company Number: US-B.I. PHARMACEUTICALS,INC./RIDGEFIELD-2013-BI-10367BP

PATIENT
  Age: 50 Year
  Sex: Female

DRUGS (2)
  1. COMBIVENT [Suspect]
     Indication: BRONCHITIS CHRONIC
     Dosage: STRENGTH:  20/100MCG, DAILY DOSE: 80/400MCG
     Route: 055
     Dates: start: 201303
  2. COMBIVENT [Suspect]
     Indication: BRONCHITIS CHRONIC
     Dosage: STRENGTH: 18/103MCG, DAILY DOSE: 144/824MCG
     Route: 055
     Dates: start: 1998, end: 201303

REACTIONS (5)
  - Dyspnoea [Not Recovered/Not Resolved]
  - Headache [Not Recovered/Not Resolved]
  - Nasopharyngitis [Recovered/Resolved]
  - Palpitations [Not Recovered/Not Resolved]
  - Product quality issue [Unknown]
